FAERS Safety Report 23962412 (Version 1)
Quarter: 2024Q2

REPORT INFORMATION
  Report Type: Spontaneous
  Country: US (occurrence: US)
  Receive Date: 20240611
  Receipt Date: 20240611
  Transmission Date: 20240716
  Serious: No
  Sender: FDA-Public Use
  Company Number: US-INSUD PHARMA-2405US04355

PATIENT

DRUGS (1)
  1. LORYNA [Suspect]
     Active Substance: DROSPIRENONE\ETHINYL ESTRADIOL
     Indication: Premenstrual dysphoric disorder
     Dosage: UNK, QD
     Route: 048

REACTIONS (4)
  - Intermenstrual bleeding [Not Recovered/Not Resolved]
  - Wrong technique in product usage process [Unknown]
  - Product dose omission issue [Unknown]
  - Product prescribing issue [Unknown]

NARRATIVE: CASE EVENT DATE: 20240507
